FAERS Safety Report 14079544 (Version 1)
Quarter: 2017Q4

REPORT INFORMATION
  Report Type: Spontaneous
  Country: GB (occurrence: GB)
  Receive Date: 20171012
  Receipt Date: 20171012
  Transmission Date: 20180321
  Serious: Yes (Other)
  Sender: FDA-Public Use
  Company Number: GB-BAYER-1198910907

PATIENT
  Age: 14 Year
  Sex: Female
  Weight: 46.89 kg

DRUGS (4)
  1. KETOVITE [VITAMINS NOS] [Concomitant]
  2. PANCREATIN [Concomitant]
     Active Substance: PANCRELIPASE
  3. CEFACLOR. [Concomitant]
     Active Substance: CEFACLOR
  4. CIPROFLOXACIN. [Suspect]
     Active Substance: CIPROFLOXACIN
     Indication: LOWER RESPIRATORY TRACT INFECTION
     Dosage: 500 MG (DAILY DOSE), ,
     Dates: start: 19890630, end: 19890823

REACTIONS (5)
  - Headache [Recovered/Resolved]
  - Diplopia [Recovered/Resolved]
  - Papilloedema [Recovered/Resolved]
  - Paralysis [Recovered/Resolved]
  - Idiopathic intracranial hypertension [Recovered/Resolved]

NARRATIVE: CASE EVENT DATE: 19890810
